FAERS Safety Report 5473039-5 (Version None)
Quarter: 2007Q4

REPORT INFORMATION
  Report Type: 
  Country: None (occurrence: None)
  Receive Date: 20071001
  Receipt Date: 20070206
  Transmission Date: 20080405
  Serious: No
  Sender: FDA-Public Use
  Company Number: US-ASTRAZENECA-2007UW02528

PATIENT
  Age: 83 Year
  Sex: Female
  Weight: 63.5 kg

DRUGS (3)
  1. ARIMIDEX [Suspect]
     Indication: BREAST CANCER
     Route: 048
  2. LIPITOR [Concomitant]
  3. NEXIUM [Concomitant]

REACTIONS (6)
  - BONE PAIN [None]
  - CHEST DISCOMFORT [None]
  - COUGH [None]
  - GINGIVAL INFECTION [None]
  - NASOPHARYNGITIS [None]
  - VAGINAL INFECTION [None]
